FAERS Safety Report 9131737 (Version 1)
Quarter: 2013Q1

REPORT INFORMATION
  Report Type: Report from Study
  Country: US (occurrence: US)
  Receive Date: 20130301
  Receipt Date: 20130301
  Transmission Date: 20140127
  Serious: No
  Sender: FDA-Public Use
  Company Number: US-MYLANLABS-2012S1012929

PATIENT
  Age: 36 Year
  Sex: Female

DRUGS (4)
  1. CLARAVIS [Suspect]
     Indication: ACNE
     Route: 048
  2. AMNESTEEM CAPSULES [Suspect]
     Indication: ACNE
     Route: 048
     Dates: end: 20120621
  3. HCTZ [Concomitant]
     Indication: OEDEMA
  4. ZOLOFT [Concomitant]
     Indication: ANXIETY

REACTIONS (1)
  - Headache [Not Recovered/Not Resolved]
